FAERS Safety Report 7992715 (Version 3)
Quarter: 2012Q4

REPORT INFORMATION
  Report Type: Spontaneous
  Country: US (occurrence: None)
  Receive Date: 20110527
  Receipt Date: 20120824
  Transmission Date: 20130627
  Serious: Yes (Hospitalization)
  Sender: FDA-Public Use
  Company Number: DKLU1070744

PATIENT
  Sex: Female

DRUGS (1)
  1. SABRIL [Suspect]
     Indication: INFANTILE SPASMS

REACTIONS (5)
  - MALABSORPTION [None]
  - HYPOALBUMINAEMIA [None]
  - LYMPHANGIECTASIA [None]
  - PROTEIN-LOSING GASTROENTEROPATHY [None]
  - IMMUNODEFICIENCY [None]
